FAERS Safety Report 9278959 (Version 1)
Quarter: 2013Q2

REPORT INFORMATION
  Report Type: Spontaneous
  Country: US (occurrence: US)
  Receive Date: 20130508
  Receipt Date: 20130508
  Transmission Date: 20140414
  Serious: Yes (Hospitalization)
  Sender: FDA-Public Use
  Company Number: US-BAYER-2013-055359

PATIENT
  Age: 42 Year
  Sex: Female

DRUGS (3)
  1. YASMIN [Suspect]
  2. EFFEXOR [Concomitant]
     Dosage: 200 MG, PER DAY
     Route: 048
  3. CLOZARIL [Concomitant]
     Dosage: 300 MG, PER DAY
     Route: 048

REACTIONS (2)
  - Pulmonary embolism [None]
  - Thrombophlebitis superficial [None]
